FAERS Safety Report 10289898 (Version 1)
Quarter: 2014Q3

REPORT INFORMATION
  Report Type: Spontaneous
  Country: US (occurrence: None)
  Receive Date: 20140707
  Receipt Date: 20140707
  Transmission Date: 20150326
  Serious: Yes (Hospitalization, Other)
  Sender: FDA-Public Use
  Company Number: ADR-2014-00814

PATIENT
  Age: 57 Year
  Sex: Male

DRUGS (1)
  1. BACLOFEN. [Suspect]
     Active Substance: BACLOFEN
     Indication: MUSCLE SPASTICITY

REACTIONS (9)
  - Pyrexia [None]
  - Convulsion [None]
  - Dyspnoea [None]
  - Vomiting [None]
  - Lethargy [None]
  - Overdose [None]
  - Coma [None]
  - Hunger [None]
  - Unresponsive to stimuli [None]

NARRATIVE: CASE EVENT DATE: 20140421
